FAERS Safety Report 25525892 (Version 1)
Quarter: 2025Q3

REPORT INFORMATION
  Report Type: Report from Study
  Country: IN (occurrence: IN)
  Receive Date: 20250707
  Receipt Date: 20250707
  Transmission Date: 20251020
  Serious: Yes (Death, Hospitalization, Other)
  Sender: DAIICHI
  Company Number: IN-AstraZeneca-CH-00903615A

PATIENT
  Sex: Female
  Weight: 58 kg

DRUGS (1)
  1. ENHERTU [Suspect]
     Active Substance: FAM-TRASTUZUMAB DERUXTECAN-NXKI
     Indication: HER2 positive breast cancer
     Dosage: 300 MG, ONCE EVERY 3 WK
     Route: 041

REACTIONS (4)
  - Dyspnoea [Fatal]
  - Pulmonary oedema [Unknown]
  - Seizure [Unknown]
  - Drug ineffective [Unknown]

NARRATIVE: CASE EVENT DATE: 20250701
